APPROVED DRUG PRODUCT: SUCRALFATE
Active Ingredient: SUCRALFATE
Strength: 1GM
Dosage Form/Route: TABLET;ORAL
Application: A215705 | Product #001 | TE Code: AB
Applicant: ZYDUS LIFESCIENCES LTD
Approved: May 3, 2023 | RLD: No | RS: No | Type: RX